FAERS Safety Report 21638757 (Version 2)
Quarter: 2023Q4

REPORT INFORMATION
  Report Type: Report from Study
  Country: DE (occurrence: DE)
  Receive Date: 20221124
  Receipt Date: 20231218
  Transmission Date: 20240110
  Serious: Yes (Hospitalization, Other)
  Sender: FDA-Public Use
  Company Number: DE-PFM-2022-06984

PATIENT
  Age: 74 Year
  Sex: Female
  Weight: 63 kg

DRUGS (7)
  1. BRAFTOVI [Suspect]
     Active Substance: ENCORAFENIB
     Indication: Colorectal cancer
     Dosage: 300 MG/DAY
     Route: 048
     Dates: start: 20220630, end: 20220802
  2. CETUXIMAB [Suspect]
     Active Substance: CETUXIMAB
     Indication: Colorectal cancer
     Dosage: 250 MG/M2, LIQUID DILUTION
     Route: 042
     Dates: start: 20220630, end: 20220728
  3. BISOPROLOL [Concomitant]
     Active Substance: BISOPROLOL\BISOPROLOL FUMARATE
     Indication: Atrial fibrillation
     Dosage: 5 MG, BID (2/DAY)
     Route: 048
  4. RAMIPRIL [Concomitant]
     Active Substance: RAMIPRIL
     Indication: Essential hypertension
     Dosage: 5 MG, BID (2/DAY)
     Route: 048
  5. ELIQUIS [Concomitant]
     Active Substance: APIXABAN
     Indication: Atrial fibrillation
     Dosage: 5 MG, BID (2/DAY)
     Route: 048
  6. MINOCYCLINE HYDROCHLORIDE [Concomitant]
     Active Substance: MINOCYCLINE HYDROCHLORIDE
     Indication: Prophylaxis
     Dosage: 100 MG, DAILY
     Route: 048
     Dates: start: 20220630, end: 20220802
  7. PLIAZON [CERAMIDE;PALMITIC ACID;PARAFFIN, LIQUID;PHYTOMENADIONE;PHYTOS [Concomitant]
     Indication: Prophylaxis
     Dosage: 1 DF, DAILY
     Route: 061
     Dates: start: 20220630, end: 20220802

REACTIONS (2)
  - Oesophageal stenosis [Recovered/Resolved]
  - Decreased appetite [Not Recovered/Not Resolved]

NARRATIVE: CASE EVENT DATE: 20220802
